FAERS Safety Report 23936854 (Version 8)
Quarter: 2024Q4

REPORT INFORMATION
  Report Type: Spontaneous
  Country: CA (occurrence: CA)
  Receive Date: 20240604
  Receipt Date: 20241219
  Transmission Date: 20250114
  Serious: Yes (Hospitalization, Other)
  Sender: PFIZER
  Company Number: CA-PFIZER INC-202400079848

PATIENT
  Age: 69 Year
  Sex: Male

DRUGS (5)
  1. ABRILADA [Suspect]
     Active Substance: ADALIMUMAB-AFZB
     Indication: Crohn^s disease
     Dosage: 40 MG, EVERY 2 WEEK, WEEK 0 160MG WEEK 2 80MG
     Route: 058
     Dates: start: 20240306
  2. ABRILADA [Suspect]
     Active Substance: ADALIMUMAB-AFZB
     Dosage: 40 MG, EVERY 2 WEEK, WEEK 0 160MG WEEK 2 80MG
     Route: 058
     Dates: start: 20240403
  3. ABRILADA [Suspect]
     Active Substance: ADALIMUMAB-AFZB
     Dosage: 40 MG, EVERY 2 WEEK, WEEK 0 160MG WEEK 2 80MG
     Route: 058
     Dates: start: 20240529
  4. ABRILADA [Suspect]
     Active Substance: ADALIMUMAB-AFZB
     Dosage: 40 MG, EVERY 2 WEEK, (WEEK 0 160MG WEEK 2 80MG)
     Route: 058
     Dates: start: 2024
  5. PENTASA [Concomitant]
     Active Substance: MESALAMINE
     Dosage: 1 DF
     Dates: start: 202309

REACTIONS (6)
  - Pulmonary embolism [Unknown]
  - Colon cancer [Unknown]
  - Gastrointestinal stenosis [Recovering/Resolving]
  - Drug ineffective [Recovered/Resolved]
  - Constipation [Not Recovered/Not Resolved]
  - Dyspepsia [Not Recovered/Not Resolved]

NARRATIVE: CASE EVENT DATE: 20240101
